FAERS Safety Report 18342734 (Version 1)
Quarter: 2020Q4

REPORT INFORMATION
  Report Type: Spontaneous
  Country: GB (occurrence: GB)
  Receive Date: 20201005
  Receipt Date: 20201005
  Transmission Date: 20210113
  Serious: Yes (Other)
  Sender: FDA-Public Use
  Company Number: GB-TEVA-2020-GB-1835284

PATIENT
  Age: 43 Year
  Sex: Female

DRUGS (6)
  1. HYDROCORTISONE. [Concomitant]
     Active Substance: HYDROCORTISONE
     Indication: RASH ERYTHEMATOUS
     Route: 061
  2. PREDNISOLONE. [Concomitant]
     Active Substance: PREDNISOLONE
     Indication: PARANEOPLASTIC DERMATOMYOSITIS
     Dosage: 40 MILLIGRAM DAILY; AT WEANING DOSAGES
     Route: 065
  3. HYDROCORTISONE. [Concomitant]
     Active Substance: HYDROCORTISONE
     Indication: PARANEOPLASTIC DERMATOMYOSITIS
  4. CLOBETASOL [Concomitant]
     Active Substance: CLOBETASOL
     Indication: PARANEOPLASTIC DERMATOMYOSITIS
     Route: 061
  5. HYDROCORTISONE. [Concomitant]
     Active Substance: HYDROCORTISONE
     Indication: RASH MACULO-PAPULAR
  6. DOXORUBICIN [Suspect]
     Active Substance: DOXORUBICIN
     Indication: LEIOMYOSARCOMA METASTATIC
     Route: 065

REACTIONS (1)
  - Febrile neutropenia [Unknown]
